FAERS Safety Report 8615320 (Version 2)
Quarter: 2014Q2

REPORT INFORMATION
  Report Type: Spontaneous
  Country: US (occurrence: US)
  Receive Date: 20120614
  Receipt Date: 20140519
  Transmission Date: 20141212
  Serious: No
  Sender: FDA-Public Use
  Company Number: US-AMGEN-USASP2012021029

PATIENT
  Age: 77 Year
  Sex: Female

DRUGS (8)
  1. PROLIA [Suspect]
     Indication: OSTEOPOROSIS POSTMENOPAUSAL
     Dosage: 60 MG, Q6MO
     Route: 065
     Dates: start: 20111005
  2. VITAMIN B12                        /00056201/ [Concomitant]
  3. CALCIUM D                          /00944201/ [Concomitant]
  4. FISH OIL [Concomitant]
  5. LISINOPRIL/HCTZ [Concomitant]
  6. LIPITOR [Concomitant]
  7. MULTIVITAMIN                       /00097801/ [Concomitant]
  8. BIOTIN [Concomitant]
     Indication: NAIL DISORDER

REACTIONS (2)
  - Nail disorder [Recovered/Resolved]
  - Medication error [Unknown]
